FAERS Safety Report 7597976-0 (Version None)
Quarter: 2011Q3

REPORT INFORMATION
  Report Type: 
  Country: None (occurrence: None)
  Receive Date: 20110708
  Receipt Date: 20110707
  Transmission Date: 20111222
  Serious: Yes (Life-Threatening)
  Sender: FDA-Public Use
  Company Number: PHHY2011SA55824

PATIENT
  Age: 49 Year
  Sex: Male

DRUGS (1)
  1. METFORMIN HCL [Suspect]
     Dosage: 40 TO 50G, UNK

REACTIONS (10)
  - ALTERED STATE OF CONSCIOUSNESS [None]
  - MYDRIASIS [None]
  - LACTIC ACIDOSIS [None]
  - PUPILLARY REFLEX IMPAIRED [None]
  - HYPERKALAEMIA [None]
  - HAEMODYNAMIC INSTABILITY [None]
  - INTENTIONAL OVERDOSE [None]
  - SUICIDE ATTEMPT [None]
  - IRRITABILITY [None]
  - SEDATION [None]
